FAERS Safety Report 25997399 (Version 2)
Quarter: 2025Q4

REPORT INFORMATION
  Report Type: Spontaneous
  Country: US (occurrence: US)
  Receive Date: 20251104
  Receipt Date: 20251204
  Transmission Date: 20260118
  Serious: No
  Sender: ARDELYX
  Company Number: US-ARDELYX-2025ARDX007662

PATIENT
  Age: 73 Year
  Sex: Male

DRUGS (3)
  1. IBSRELA [Suspect]
     Active Substance: TENAPANOR HYDROCHLORIDE
     Indication: Irritable bowel syndrome
     Dosage: 50 MG, BID
     Route: 048
     Dates: start: 202510
  2. IBSRELA [Suspect]
     Active Substance: TENAPANOR HYDROCHLORIDE
     Indication: Anal fissure
  3. MESALAMINE [Concomitant]
     Active Substance: MESALAMINE
     Indication: Anal fissure
     Dosage: UNK
     Route: 065

REACTIONS (4)
  - Diarrhoea [Recovered/Resolved]
  - Biopsy [Unknown]
  - Inappropriate schedule of product administration [Unknown]
  - Insurance issue [Unknown]

NARRATIVE: CASE EVENT DATE: 20251001
